FAERS Safety Report 7142230-4 (Version None)
Quarter: 2010Q4

REPORT INFORMATION
  Report Type: 
  Country: None (occurrence: None)
  Receive Date: 20101112
  Receipt Date: 20100715
  Transmission Date: 20110411
  Serious: No
  Sender: FDA-Public Use
  Company Number: 1000015140

PATIENT
  Age: 69 Year
  Sex: Female

DRUGS (6)
  1. SAVELLA [Suspect]
     Indication: FIBROMYALGIA
     Dosage: 12.5 MG (12.5 MG, 1 IN 1 D), ORAL, 25 MG (25 MG, 1 IN 1 D), ORAL
     Route: 048
     Dates: start: 20100603, end: 20100607
  2. SAVELLA [Suspect]
     Indication: FIBROMYALGIA
     Dosage: 12.5 MG (12.5 MG, 1 IN 1 D), ORAL, 25 MG (25 MG, 1 IN 1 D), ORAL
     Route: 048
     Dates: start: 20100609, end: 20100615
  3. SAVELLA [Suspect]
     Indication: FIBROMYALGIA
     Dosage: 50 MG (50 MG, 1 IN 1 D), ORAL
     Route: 048
     Dates: start: 20100616, end: 20100714
  4. PRAVACHOL [Concomitant]
  5. NEXIUM [Concomitant]
  6. LORTAB [Concomitant]

REACTIONS (4)
  - BLADDER SPASM [None]
  - DYSURIA [None]
  - MICTURITION URGENCY [None]
  - POLLAKIURIA [None]
